FAERS Safety Report 9513330 (Version 1)
Quarter: 2013Q1

REPORT INFORMATION
  Report Type: Spontaneous
  Country: US (occurrence: None)
  Receive Date: 20130305
  Receipt Date: 20130305
  Transmission Date: 20140127
  Serious: Yes (Other)
  Sender: FDA-Public Use
  Company Number: 163-21880-12080416

PATIENT
  Age: 61 Year
  Sex: Female

DRUGS (3)
  1. REVLIMID (LENALIDOMIDE) (CAPSULES) [Suspect]
     Indication: PLASMA CELL MYELOMA
     Dosage: 25 MG, 14 IN 21 D, PO
     Route: 048
     Dates: start: 20120531
  2. VELCADE [Concomitant]
  3. PREDNISONE (PREDNISONE) (UNKNOWN) [Concomitant]

REACTIONS (7)
  - Joint swelling [None]
  - Dysphonia [None]
  - Restlessness [None]
  - Abdominal pain upper [None]
  - Night sweats [None]
  - Rash pruritic [None]
  - Insomnia [None]
